FAERS Safety Report 7525212-X (Version None)
Quarter: 2011Q2

REPORT INFORMATION
  Report Type: 
  Country: None (occurrence: None)
  Receive Date: 20110606
  Receipt Date: 20110601
  Transmission Date: 20111010
  Serious: Yes (Other)
  Sender: FDA-Public Use
  Company Number: US-PFIZER INC-2011119347

PATIENT
  Sex: Female
  Weight: 73.469 kg

DRUGS (7)
  1. CLARINEX [Concomitant]
     Dosage: UNK
  2. SERTRALINE [Concomitant]
     Dosage: UNK
  3. ROBITUSSIN COUGH AND CHEST CONGESTION DM MAX [Suspect]
     Dosage: TABLESPOON TWICE DAILY AS NEEDED
     Route: 048
  4. TRIAMTERENE [Concomitant]
     Dosage: UNK
  5. SIMVASTATIN [Concomitant]
     Dosage: UNK
  6. VESICARE [Concomitant]
     Dosage: UNK
  7. LOSARTAN [Concomitant]
     Dosage: UNK

REACTIONS (4)
  - OVERWEIGHT [None]
  - ALLERGIC COUGH [None]
  - HYPERPHAGIA [None]
  - DRUG DEPENDENCE [None]
